FAERS Safety Report 23060749 (Version 1)
Quarter: 2023Q4

REPORT INFORMATION
  Report Type: Spontaneous
  Country: US (occurrence: US)
  Receive Date: 20231012
  Receipt Date: 20231012
  Transmission Date: 20240110
  Serious: Yes (Hospitalization, Other)
  Sender: FDA-Public Use
  Company Number: US-ABBVIE-5440212

PATIENT
  Age: 14 Year
  Sex: Female
  Weight: 93 kg

DRUGS (9)
  1. LEXAPRO [Suspect]
     Active Substance: ESCITALOPRAM OXALATE
     Indication: Product used for unknown indication
     Route: 048
  2. VINCRISTINE [Suspect]
     Active Substance: VINCRISTINE
     Indication: Acute lymphocytic leukaemia
     Dosage: 2 MILLIGRAM X 5 DOSES
     Route: 042
     Dates: start: 20230615
  3. MERCAPTOPURINE [Suspect]
     Active Substance: MERCAPTOPURINE
     Indication: Acute lymphocytic leukaemia
     Dosage: 150 MG 6 DAYS/WEEK, 175 MG 1 DAY/WEEK
     Route: 048
     Dates: start: 20230822, end: 20230908
  4. METHOTREXATE [Suspect]
     Active Substance: METHOTREXATE
     Indication: Acute lymphocytic leukaemia
     Dosage: 41.25 MG ONCE PER WEEK
     Route: 048
     Dates: start: 20230829, end: 20230908
  5. METHOTREXATE [Suspect]
     Active Substance: METHOTREXATE
     Indication: Acute lymphocytic leukaemia
     Dosage: 210 MILLIGRAM
     Route: 037
     Dates: start: 20230615
  6. METHOTREXATE [Suspect]
     Active Substance: METHOTREXATE
     Indication: Acute lymphocytic leukaemia
     Route: 042
     Dates: start: 20230626
  7. RUXOLITINIB [Suspect]
     Active Substance: RUXOLITINIB
     Indication: Acute lymphocytic leukaemia
     Route: 048
     Dates: start: 20230615
  8. ONDANSETRON [Suspect]
     Active Substance: ONDANSETRON
     Indication: Product used for unknown indication
     Route: 065
     Dates: start: 20230830
  9. ASPARAGINASE [Suspect]
     Active Substance: ASPARAGINASE
     Indication: Acute lymphocytic leukaemia
     Dosage: 100 MILLIGRAM X 6 DOSES
     Route: 042
     Dates: start: 20230616

REACTIONS (26)
  - Hepatic failure [Recovered/Resolved]
  - Loss of consciousness [Recovered/Resolved]
  - Electrocardiogram QT prolonged [Recovered/Resolved]
  - Hepatic steatosis [Unknown]
  - Febrile neutropenia [Recovered/Resolved]
  - Encephalopathy [Recovered/Resolved]
  - Stomatitis [Recovered/Resolved]
  - Haematemesis [Unknown]
  - Hepatotoxicity [Unknown]
  - Nausea [Unknown]
  - Vomiting [Unknown]
  - Fatigue [Unknown]
  - Chest pain [Recovered/Resolved]
  - Mental status changes [Unknown]
  - Dizziness [Unknown]
  - Gait disturbance [Unknown]
  - Pyrexia [Recovered/Resolved]
  - Oral pain [Unknown]
  - Ulcer haemorrhage [Unknown]
  - Hypertransaminasaemia [Unknown]
  - Lethargy [Unknown]
  - Oropharyngeal pain [Unknown]
  - Transaminases increased [Unknown]
  - Respiratory depth decreased [Unknown]
  - Abnormal clotting factor [Unknown]
  - Syncope [Recovered/Resolved]

NARRATIVE: CASE EVENT DATE: 20230807
